FAERS Safety Report 5102754-8 (Version None)
Quarter: 2006Q3

REPORT INFORMATION
  Report Type: 
  Country: None (occurrence: None)
  Receive Date: 20060907
  Receipt Date: 20060822
  Transmission Date: 20061208
  Serious: Yes (Other)
  Sender: FDA-Public Use
  Company Number: ANTA0600339

PATIENT
  Age: 53 Year
  Sex: Male

DRUGS (4)
  1. FENOFIBRATE [Suspect]
     Indication: DYSLIPIDAEMIA
     Dosage: 267.5 MG, QD
  2. GLICLAZIDE(GLICLAZIDE) [Suspect]
     Indication: HYPERGLYCAEMIA
  3. PERINDOPRIL ERBUMINE [Concomitant]
  4. BISOPROLOL FUMARATE [Concomitant]

REACTIONS (8)
  - DEHYDRATION [None]
  - DIABETES MELLITUS [None]
  - DIARRHOEA [None]
  - DRUG INTERACTION [None]
  - LABELLED DRUG-DISEASE INTERACTION MEDICATION ERROR [None]
  - RENAL FAILURE [None]
  - RHABDOMYOLYSIS [None]
  - WEIGHT DECREASED [None]
